FAERS Safety Report 6616773-3 (Version None)
Quarter: 2010Q1

REPORT INFORMATION
  Report Type: 
  Country: None (occurrence: None)
  Receive Date: 20100301
  Receipt Date: 20100218
  Transmission Date: 20100710
  Serious: Yes (Death)
  Sender: FDA-Public Use
  Company Number: 007374

PATIENT

DRUGS (1)
  1. LEVETIRACETAM [Suspect]
     Dates: start: 20000101, end: 20020301

REACTIONS (4)
  - AFFECTIVE DISORDER [None]
  - CONVULSION [None]
  - FATIGUE [None]
  - SEDATION [None]
